FAERS Safety Report 23345754 (Version 2)
Quarter: 2024Q2

REPORT INFORMATION
  Report Type: Spontaneous
  Country: US (occurrence: US)
  Receive Date: 20231228
  Receipt Date: 20240517
  Transmission Date: 20240716
  Serious: No
  Sender: FDA-Public Use
  Company Number: US-HORIZON THERAPEUTICS-HZN-2023-006149

PATIENT

DRUGS (4)
  1. ACTIMMUNE [Suspect]
     Active Substance: INTERFERON GAMMA-1B
     Indication: Chronic granulomatous disease
     Dosage: 0.17 ML, THREE TIMES IN WEEK
     Route: 058
     Dates: start: 20230523, end: 202305
  2. ACTIMMUNE [Suspect]
     Active Substance: INTERFERON GAMMA-1B
     Dosage: 0.17 ML, THREE TIMES IN WEEK
     Route: 058
     Dates: start: 2023
  3. SPORANOX [Concomitant]
     Active Substance: ITRACONAZOLE
     Dosage: 8 ML (80 MG), DAILY
     Route: 048
  4. BACTRIM [Concomitant]
     Active Substance: SULFAMETHOXAZOLE\TRIMETHOPRIM
     Dosage: 200 MG-40 MG/5 ML SUSPENSION(80 MG TOTAL, 5 MG/KG/DOSE X 16.1 KG)
     Route: 048

REACTIONS (2)
  - Rash [Recovered/Resolved]
  - Drug hypersensitivity [Unknown]

NARRATIVE: CASE EVENT DATE: 20230101
